FAERS Safety Report 16975844 (Version 1)
Quarter: 2019Q4

REPORT INFORMATION
  Report Type: Spontaneous
  Country: CN (occurrence: CN)
  Receive Date: 20191030
  Receipt Date: 20191030
  Transmission Date: 20200122
  Serious: Yes (Other)
  Sender: FDA-Public Use
  Company Number: CN-BAXTER-2019BAX021252

PATIENT
  Age: 72 Year
  Sex: Female

DRUGS (1)
  1. 20% MANNITOL INJECTION [Suspect]
     Active Substance: MANNITOL
     Indication: DEHYDRATION
     Route: 041
     Dates: start: 20191010, end: 20191010

REACTIONS (3)
  - Pyrexia [Recovered/Resolved]
  - Muscle tightness [Unknown]
  - Chills [Unknown]

NARRATIVE: CASE EVENT DATE: 20191010
